FAERS Safety Report 9863085 (Version 1)
Quarter: 2014Q1

REPORT INFORMATION
  Report Type: Spontaneous
  Country: US (occurrence: US)
  Receive Date: 20140203
  Receipt Date: 20140203
  Transmission Date: 20141002
  Serious: Yes (Other)
  Sender: FDA-Public Use
  Company Number: US-GLAXOSMITHKLINE-B0965481A

PATIENT
  Age: 61 Year
  Sex: Male

DRUGS (2)
  1. ALLI [Suspect]
     Indication: WEIGHT DECREASED
     Route: 065
  2. ORLISTAT [Suspect]
     Indication: WEIGHT DECREASED
     Dosage: 120MG THREE TIMES PER DAY
     Route: 065

REACTIONS (7)
  - Nephropathy [Recovered/Resolved]
  - Nausea [Unknown]
  - Vomiting [Unknown]
  - Hypophagia [Unknown]
  - Urine oxalate increased [Unknown]
  - Renal tubular necrosis [Unknown]
  - Hyperkalaemia [Unknown]
